FAERS Safety Report 25395363 (Version 1)
Quarter: 2025Q2

REPORT INFORMATION
  Report Type: Spontaneous
  Country: GB (occurrence: GB)
  Receive Date: 20250604
  Receipt Date: 20250604
  Transmission Date: 20250716
  Serious: Yes (Other)
  Sender: PFIZER
  Company Number: GB-BRAUNP-GB-BBM-202500513

PATIENT
  Age: 31 Year
  Sex: Female
  Weight: 67 kg

DRUGS (11)
  1. WATER FOR INJECTION [Suspect]
     Active Substance: WATER
  2. AMINO ACIDS\DEXTROSE\ELECTROLYTES NOS [Suspect]
     Active Substance: AMINO ACIDS\DEXTROSE\ELECTROLYTES NOS
  3. AMINO ACIDS\DEXTROSE\ELECTROLYTES NOS [Suspect]
     Active Substance: AMINO ACIDS\DEXTROSE\ELECTROLYTES NOS
  4. AMINO ACIDS\DEXTROSE\ELECTROLYTES NOS\SOYBEAN OIL [Suspect]
     Active Substance: AMINO ACIDS\DEXTROSE\ELECTROLYTES NOS\SOYBEAN OIL
  5. SODIUM CHLORIDE [Suspect]
     Active Substance: SODIUM CHLORIDE
  6. MAGNESIUM SULFATE [Suspect]
     Active Substance: MAGNESIUM SULFATE
  7. POTASSIUM CHLORIDE\SODIUM CHLORIDE [Suspect]
     Active Substance: POTASSIUM CHLORIDE\SODIUM CHLORIDE
  8. CERNEVIT [Suspect]
     Active Substance: VITAMINS
  9. CERNEVIT [Suspect]
     Active Substance: VITAMINS
  10. IRON\MINERALS\POTASSIUM IOD\SODIUM FLUORIDE\SODIUM MOLYBDATE\SODIUM SE [Suspect]
     Active Substance: IRON\MINERALS\POTASSIUM IOD\SODIUM FLUORIDE\SODIUM MOLYBDATE\SODIUM SELENITE\ZINC
  11. IRON\MINERALS\POTASSIUM IOD\SODIUM FLUORIDE\SODIUM MOLYBDATE\SODIUM SE [Suspect]
     Active Substance: IRON\MINERALS\POTASSIUM IOD\SODIUM FLUORIDE\SODIUM MOLYBDATE\SODIUM SELENITE\ZINC

REACTIONS (3)
  - Malaise [Unknown]
  - Product contamination microbial [Unknown]
  - Maternal exposure during pregnancy [Unknown]

NARRATIVE: CASE EVENT DATE: 20250205
